FAERS Safety Report 9143561 (Version 1)
Quarter: 2013Q1

REPORT INFORMATION
  Report Type: Spontaneous
  Country: US (occurrence: US)
  Receive Date: 20130306
  Receipt Date: 20130306
  Transmission Date: 20140127
  Serious: Yes (Hospitalization)
  Sender: FDA-Public Use
  Company Number: US-BAYER-2013-026884

PATIENT
  Age: 39 Year
  Sex: Female
  Weight: 63.49 kg

DRUGS (4)
  1. YASMIN [Suspect]
  2. TYLENOL [Concomitant]
  3. ALBUTEROL [Concomitant]
  4. ZITHROMAX [Concomitant]

REACTIONS (3)
  - Pulmonary embolism [None]
  - Deep vein thrombosis [None]
  - Pulmonary infarction [None]
